FAERS Safety Report 21307710 (Version 1)
Quarter: 2022Q3

REPORT INFORMATION
  Report Type: Spontaneous
  Country: GB (occurrence: GB)
  Receive Date: 20220908
  Receipt Date: 20220908
  Transmission Date: 20221027
  Serious: Yes (Hospitalization)
  Sender: FDA-Public Use
  Company Number: None

PATIENT
  Age: 77 Year
  Sex: Female

DRUGS (2)
  1. SILDENAFIL CITRATE [Suspect]
     Active Substance: SILDENAFIL CITRATE
     Indication: Adverse drug reaction
     Dosage: 25 MG, 3X/DAY
     Dates: start: 20170323
  2. AMBRISENTAN [Suspect]
     Active Substance: AMBRISENTAN
     Indication: Adverse drug reaction
     Dosage: 5 MG, 1X/DAY
     Dates: start: 20220825

REACTIONS (1)
  - Spinal fracture [Unknown]
